FAERS Safety Report 5935251-8 (Version None)
Quarter: 2008Q4

REPORT INFORMATION
  Report Type: 
  Country: None (occurrence: None)
  Receive Date: 20081028
  Receipt Date: 20081023
  Transmission Date: 20090506
  Serious: Yes (Hospitalization)
  Sender: FDA-Public Use
  Company Number: 2008BI025423

PATIENT
  Age: 20 Year
  Sex: Female

DRUGS (4)
  1. TYSABRI [Suspect]
     Indication: RELAPSING-REMITTING MULTIPLE SCLEROSIS
     Dosage: 300 MG; QM; IV
     Route: 042
     Dates: start: 20080306, end: 20080901
  2. CORTICOIDS [Concomitant]
  3. IMMUNE GLOBULIN INTRAVENOUS (HUMAN) [Concomitant]
  4. CORTICOIDS [Concomitant]

REACTIONS (4)
  - MICROCYTIC ANAEMIA [None]
  - SUBCUTANEOUS HAEMATOMA [None]
  - THROMBOCYTOPENIA [None]
  - UTERINE HAEMORRHAGE [None]
